FAERS Safety Report 25010739 (Version 1)
Quarter: 2025Q1

REPORT INFORMATION
  Report Type: Spontaneous
  Country: JP (occurrence: JP)
  Receive Date: 20250225
  Receipt Date: 20250225
  Transmission Date: 20250408
  Serious: Yes (Death, Hospitalization, Other)
  Sender: MERCK SHARP & DOHME LLC
  Company Number: JP-MSD-M2024-27055

PATIENT
  Age: 82 Year
  Sex: Male

DRUGS (3)
  1. KEYTRUDA [Suspect]
     Active Substance: PEMBROLIZUMAB
     Indication: Bile duct cancer
     Dosage: DOSE DESCRIPTION : 200 MILLIGRAM, Q3W?DAILY DOSE : 9.4 MILLIGRAM?REGIMEN DOSE : 200  MILLIGRAM
     Route: 041
     Dates: start: 20240705, end: 20240705
  2. GEMCITABINE HYDROCHLORIDE [Suspect]
     Active Substance: GEMCITABINE HYDROCHLORIDE
     Indication: Bile duct cancer
     Route: 041
     Dates: start: 20240705, end: 202407
  3. CISPLATIN [Suspect]
     Active Substance: CISPLATIN
     Indication: Bile duct cancer
     Route: 041
     Dates: start: 20240705, end: 202407

REACTIONS (2)
  - Malignant neoplasm progression [Fatal]
  - Cytokine release syndrome [Not Recovered/Not Resolved]

NARRATIVE: CASE EVENT DATE: 20240707
